FAERS Safety Report 7070961-3 (Version None)
Quarter: 2010Q4

REPORT INFORMATION
  Report Type: 
  Country: None (occurrence: None)
  Receive Date: 20101029
  Receipt Date: 20101022
  Transmission Date: 20110411
  Serious: Yes (Hospitalization)
  Sender: FDA-Public Use
  Company Number: SE-B.I. PHARMACEUTICALS,INC./RIDGEFIELD-2010-SW-00325SW

PATIENT
  Sex: Male

DRUGS (12)
  1. PERSANTIN DEPOT [Suspect]
     Dosage: 400 MG
     Route: 048
     Dates: end: 20100801
  2. FURIX RETARD [Suspect]
     Dosage: 60 MG
     Route: 048
     Dates: end: 20100701
  3. TROMBYL [Suspect]
     Indication: CARDIAC FIBRILLATION
     Dosage: 75 MG
     Route: 048
     Dates: end: 20100801
  4. KALCIPOS-D [Concomitant]
     Dosage: STRENGTH: 500 MG/400 IE
  5. ALENAT [Concomitant]
  6. TOVIAZ [Concomitant]
  7. TRIOBE [Concomitant]
  8. MADOPARK QUICK MITE [Concomitant]
     Dosage: STRENGTH: 50 MG/12.5 MG
  9. IMPORTAL EX-LAX [Concomitant]
     Route: 048
  10. MADOPARK QUICK [Concomitant]
     Dosage: STRENGTH: 100 MG/25 MG
  11. ACETYLCYSTEINE [Concomitant]
  12. PRAMIPEXOLE DIHYDROCHLORIDE [Concomitant]

REACTIONS (2)
  - GASTROINTESTINAL HAEMORRHAGE [None]
  - ORTHOSTATIC HYPOTENSION [None]
